FAERS Safety Report 5672829-3 (Version None)
Quarter: 2008Q1

REPORT INFORMATION
  Report Type: 
  Country: None (occurrence: None)
  Receive Date: 20080319
  Receipt Date: 20070806
  Transmission Date: 20080703
  Serious: No
  Sender: FDA-Public Use
  Company Number: US-KINGPHARMUSA00001-K200701001

PATIENT

DRUGS (4)
  1. ALTACE [Suspect]
     Indication: HYPERTENSION
     Route: 048
     Dates: start: 20070701, end: 20070806
  2. NORVASC   /00972401/ [Concomitant]
  3. TOPROL [Concomitant]
  4. HYZAAR [Concomitant]

REACTIONS (4)
  - LIP SWELLING [None]
  - PRURITUS [None]
  - RASH [None]
  - SWOLLEN TONGUE [None]
